FAERS Safety Report 13755050 (Version 2)
Quarter: 2017Q3

REPORT INFORMATION
  Report Type: Report from Study
  Country: None (occurrence: GB)
  Receive Date: 20170714
  Receipt Date: 20170725
  Transmission Date: 20171127
  Serious: Yes (Hospitalization)
  Sender: FDA-Public Use
  Company Number: GB-ABBVIE-17K-167-2026821-00

PATIENT
  Age: 77 Year
  Sex: Male

DRUGS (2)
  1. RIVASTIGMINE PATCH [Suspect]
     Active Substance: RIVASTIGMINE
     Indication: DEMENTIA
     Route: 065
  2. DUODOPA [Suspect]
     Active Substance: CARBIDOPA\LEVODOPA
     Indication: PARKINSON^S DISEASE
     Dosage: 100ML CASSETTE
     Route: 050

REACTIONS (16)
  - Fall [Unknown]
  - Device dislocation [Unknown]
  - Stoma site erythema [Unknown]
  - Abnormal behaviour [Unknown]
  - Musculoskeletal stiffness [Unknown]
  - Stoma site infection [Unknown]
  - Dyskinesia [Unknown]
  - Dysuria [Unknown]
  - Accidental overdose [Unknown]
  - Dementia [Unknown]
  - Humerus fracture [Unknown]
  - Agitation [Unknown]
  - Constipation [Unknown]
  - Laceration [Unknown]
  - Infection [Unknown]
  - Urinary tract infection [Unknown]

NARRATIVE: CASE EVENT DATE: 2017
